APPROVED DRUG PRODUCT: ZEVTERA
Active Ingredient: CEFTOBIPROLE MEDOCARIL SODIUM
Strength: 667MG/VIAL
Dosage Form/Route: POWDER;INTRAVENOUS
Application: N218275 | Product #001
Applicant: ISTX LLC
Approved: Apr 3, 2024 | RLD: Yes | RS: Yes | Type: RX

EXCLUSIVITY:
Code: NCE | Date: Apr 3, 2029
Code: GAIN | Date: Apr 3, 2034